FAERS Safety Report 6765039-X (Version None)
Quarter: 2010Q2

REPORT INFORMATION
  Report Type: 
  Country: None (occurrence: None)
  Receive Date: 20100610
  Receipt Date: 20100601
  Transmission Date: 20101027
  Serious: Yes (Hospitalization, Other)
  Sender: FDA-Public Use
  Company Number: ES-MERCK-1005ESP00011

PATIENT
  Age: 78 Year
  Sex: Female

DRUGS (4)
  1. FOSAMAX PLUS D [Suspect]
     Route: 048
     Dates: start: 20100101, end: 20100201
  2. ALENDRONATE SODIUM [Concomitant]
     Route: 065
     Dates: start: 20000101
  3. DEFLAZACORT [Concomitant]
     Route: 065
  4. LEFLUNOMIDE [Concomitant]
     Route: 048

REACTIONS (3)
  - FRACTURE DELAYED UNION [None]
  - GROIN PAIN [None]
  - PATHOLOGICAL FRACTURE [None]
